FAERS Safety Report 19286132 (Version 1)
Quarter: 2021Q2

REPORT INFORMATION
  Report Type: Spontaneous
  Country: US (occurrence: US)
  Receive Date: 20210521
  Receipt Date: 20210521
  Transmission Date: 20210717
  Serious: Yes (Other)
  Sender: FDA-Public Use
  Company Number: US-PFIZER INC-2021556034

PATIENT
  Age: 4 Year
  Sex: Male

DRUGS (3)
  1. MORPHINE SULFATE. [Concomitant]
     Active Substance: MORPHINE SULFATE
     Dosage: UNK, CYCLIC
  2. ASPARAGINASE [Concomitant]
     Active Substance: ASPARAGINASE
     Indication: MYELODYSPLASTIC SYNDROME
  3. CYTARABINE. [Suspect]
     Active Substance: CYTARABINE
     Indication: PAIN
     Dosage: UNK

REACTIONS (1)
  - Acute febrile neutrophilic dermatosis [Recovering/Resolving]
